FAERS Safety Report 13096644 (Version 1)
Quarter: 2017Q1

REPORT INFORMATION
  Report Type: Spontaneous
  Country: US (occurrence: US)
  Receive Date: 20170106
  Receipt Date: 20170106
  Transmission Date: 20170428
  Serious: Yes (Hospitalization)
  Sender: FDA-Public Use
  Company Number: None

PATIENT
  Age: 89 Year
  Sex: Female

DRUGS (21)
  1. ALLOPURINOL. [Concomitant]
     Active Substance: ALLOPURINOL
  2. ZETIA [Concomitant]
     Active Substance: EZETIMIBE
  3. KCL [Concomitant]
     Active Substance: POTASSIUM CHLORIDE
  4. HYDROCO/APAP [Concomitant]
     Active Substance: ACETAMINOPHEN\HYDROCODONE
  5. COLCHICINE. [Concomitant]
     Active Substance: COLCHICINE
  6. HYDRALAZINE [Concomitant]
     Active Substance: HYDRALAZINE HYDROCHLORIDE
  7. TEKTURNA [Concomitant]
     Active Substance: ALISKIREN HEMIFUMARATE
  8. OMEPRAZOLE. [Concomitant]
     Active Substance: OMEPRAZOLE
  9. MELOXICAM. [Concomitant]
     Active Substance: MELOXICAM
  10. JANUVIA [Concomitant]
     Active Substance: SITAGLIPTIN PHOSPHATE
  11. BENZONATATE. [Concomitant]
     Active Substance: BENZONATATE
  12. OXYCODONE [Concomitant]
     Active Substance: OXYCODONE
  13. AMLODIPINE [Concomitant]
     Active Substance: AMLODIPINE BESYLATE
  14. GABAPENTIN. [Concomitant]
     Active Substance: GABAPENTIN
  15. ISOSORBIDE. [Concomitant]
     Active Substance: ISOSORBIDE
  16. TRAMADOL. [Concomitant]
     Active Substance: TRAMADOL
  17. IMATINIB 100 MG APOTEX [Suspect]
     Active Substance: IMATINIB
     Indication: CHRONIC MYELOID LEUKAEMIA
     Route: 048
     Dates: start: 20131011
  18. FUROSEMIDE. [Concomitant]
     Active Substance: FUROSEMIDE
  19. LANTUS [Concomitant]
     Active Substance: INSULIN GLARGINE
  20. TIZANIDINE. [Concomitant]
     Active Substance: TIZANIDINE
  21. PROMETHAZINE [Concomitant]
     Active Substance: PROMETHAZINE\PROMETHAZINE HYDROCHLORIDE

REACTIONS (5)
  - Blood glucose decreased [None]
  - Urinary tract infection [None]
  - Pneumonia [None]
  - Blood pressure increased [None]
  - Nerve compression [None]

NARRATIVE: CASE EVENT DATE: 20161227
